FAERS Safety Report 17560524 (Version 1)
Quarter: 2020Q1

REPORT INFORMATION
  Report Type: Spontaneous
  Country: US (occurrence: US)
  Receive Date: 20200319
  Receipt Date: 20200319
  Transmission Date: 20200409
  Serious: No
  Sender: FDA-Public Use
  Company Number: US-JNJFOC-20200319278

PATIENT
  Age: 78 Year
  Sex: Male
  Weight: 70.64 kg

DRUGS (1)
  1. ZYTIGA [Suspect]
     Active Substance: ABIRATERONE ACETATE
     Indication: PROSTATE CANCER
     Route: 048
     Dates: start: 20200219

REACTIONS (8)
  - Blood pressure decreased [Not Recovered/Not Resolved]
  - Weight fluctuation [Unknown]
  - Nonspecific reaction [Unknown]
  - Nocturia [Not Recovered/Not Resolved]
  - Pain in extremity [Unknown]
  - Feeling hot [Unknown]
  - Peripheral swelling [Unknown]
  - Sensitisation [Unknown]

NARRATIVE: CASE EVENT DATE: 20200307
